FAERS Safety Report 12539439 (Version 1)
Quarter: 2016Q3

REPORT INFORMATION
  Report Type: Spontaneous
  Country: US (occurrence: None)
  Receive Date: 20160707
  Receipt Date: 20160707
  Transmission Date: 20161109
  Serious: Yes (Life-Threatening, Disabling)
  Sender: FDA-Public Use
  Company Number: None

PATIENT
  Age: 50 Year
  Sex: Female
  Weight: 125 kg

DRUGS (7)
  1. TAMOXIFEN 20MG, 20 MG [Suspect]
     Active Substance: TAMOXIFEN
     Indication: BREAST CANCER RECURRENT
     Route: 048
     Dates: start: 20150401, end: 20150831
  2. LUPRON DEPOT [Suspect]
     Active Substance: LEUPROLIDE ACETATE
     Indication: PROPHYLAXIS
     Route: 030
     Dates: start: 20160404
  3. TAMOXIFEN 20MG, 20 MG [Suspect]
     Active Substance: TAMOXIFEN
     Indication: PROPHYLAXIS
     Route: 048
     Dates: start: 20150401, end: 20150831
  4. LUPRON DEPOT [Suspect]
     Active Substance: LEUPROLIDE ACETATE
     Indication: BREAST CANCER RECURRENT
     Route: 030
     Dates: start: 20160404
  5. TAMOXIFEN 20MG, 20 MG [Suspect]
     Active Substance: TAMOXIFEN
     Indication: HORMONE SUPPRESSION THERAPY
     Route: 048
     Dates: start: 20150401, end: 20150831
  6. LUPRON DEPOT [Suspect]
     Active Substance: LEUPROLIDE ACETATE
     Indication: HORMONE SUPPRESSION THERAPY
     Route: 030
     Dates: start: 20160404
  7. WELLBUTRIN SR [Concomitant]
     Active Substance: BUPROPION HYDROCHLORIDE

REACTIONS (10)
  - Muscular weakness [None]
  - Suicidal ideation [None]
  - Arthralgia [None]
  - Insomnia [None]
  - Fatigue [None]
  - Asthenia [None]
  - Bone disorder [None]
  - Amnesia [None]
  - Hot flush [None]
  - Pain [None]
